FAERS Safety Report 22267112 (Version 1)
Quarter: 2023Q2

REPORT INFORMATION
  Report Type: Spontaneous
  Country: US (occurrence: US)
  Receive Date: 20230428
  Receipt Date: 20230428
  Transmission Date: 20230721
  Serious: No
  Sender: FDA-Public Use
  Company Number: US-TEVA-2023-US-2878470

PATIENT
  Age: 35 Year
  Sex: Male

DRUGS (1)
  1. ADDERALL [Suspect]
     Active Substance: AMPHETAMINE ASPARTATE\AMPHETAMINE SULFATE\DEXTROAMPHETAMINE SACCHARATE\DEXTROAMPHETAMINE SULFATE
     Indication: Product used for unknown indication
     Dosage: 20 MILLIGRAM IR
     Route: 065

REACTIONS (4)
  - Decreased appetite [Unknown]
  - Drug ineffective [Unknown]
  - Adverse drug reaction [Unknown]
  - Product quality issue [Unknown]
